FAERS Safety Report 5641654-1 (Version None)
Quarter: 2008Q1

REPORT INFORMATION
  Report Type: 
  Country: None (occurrence: None)
  Receive Date: 20080227
  Receipt Date: 20080213
  Transmission Date: 20080703
  Serious: Yes (Death, Hospitalization)
  Sender: FDA-Public Use
  Company Number: BE-TEVA-167480ISR

PATIENT
  Age: 64 Year
  Sex: Male

DRUGS (3)
  1. TAMOXIFEN [Suspect]
     Indication: GYNAECOMASTIA
  2. ACETYLSALICYLIC ACID [Concomitant]
  3. BISOPROLOL FUMARATE [Concomitant]

REACTIONS (4)
  - CEREBRAL HAEMORRHAGE [None]
  - CORONARY ARTERY EMBOLISM [None]
  - CORONARY ARTERY OCCLUSION [None]
  - MYOCARDIAL INFARCTION [None]
